FAERS Safety Report 14764450 (Version 1)
Quarter: 2018Q2

REPORT INFORMATION
  Report Type: Spontaneous
  Country: UY (occurrence: UY)
  Receive Date: 20180416
  Receipt Date: 20180416
  Transmission Date: 20180711
  Serious: Yes (Other)
  Sender: FDA-Public Use
  Company Number: UY-REGENERON PHARMACEUTICALS, INC.-2018-21020

PATIENT

DRUGS (1)
  1. EYLEA [Suspect]
     Active Substance: AFLIBERCEPT
     Indication: NEOVASCULAR AGE-RELATED MACULAR DEGENERATION
     Dosage: UNK

REACTIONS (6)
  - Vitreous floaters [Unknown]
  - Endophthalmitis [Unknown]
  - Vitreous opacities [Unknown]
  - Visual impairment [Unknown]
  - Eye opacity [Not Recovered/Not Resolved]
  - Corneal disorder [Unknown]
